FAERS Safety Report 9656482 (Version 3)
Quarter: 2013Q4

REPORT INFORMATION
  Report Type: Report from Study
  Country: GB (occurrence: GB)
  Receive Date: 20131030
  Receipt Date: 20131114
  Transmission Date: 20140711
  Serious: Yes (Hospitalization)
  Sender: FDA-Public Use
  Company Number: GB-EISAI INC-E7389-04353-CLI-GB

PATIENT
  Age: 48 Year
  Sex: Female
  Weight: 91 kg

DRUGS (1)
  1. HALAVEN [Suspect]
     Indication: PRODUCT USED FOR UNKNOWN INDICATION
     Dosage: UNKNOWN
     Route: 041

REACTIONS (5)
  - Tooth abscess [Recovered/Resolved]
  - Pneumocystis jirovecii pneumonia [Recovering/Resolving]
  - Sepsis [Unknown]
  - Oral candidiasis [Unknown]
  - Neutropenia [Recovered/Resolved]
